FAERS Safety Report 6318218-X (Version None)
Quarter: 2009Q3

REPORT INFORMATION
  Report Type: 
  Country: None (occurrence: None)
  Receive Date: 20090821
  Receipt Date: 20090817
  Transmission Date: 20100115
  Serious: Yes (Other)
  Sender: FDA-Public Use
  Company Number: D0062658A

PATIENT
  Sex: Female

DRUGS (6)
  1. REQUIP [Suspect]
     Indication: PARKINSON'S DISEASE
     Route: 048
  2. MADOPAR [Suspect]
     Indication: PARKINSON'S DISEASE
     Route: 065
  3. CARBIDOPA AND LEVODOPA [Suspect]
     Indication: PARKINSON'S DISEASE
     Route: 065
  4. MIRTAZAPINE [Suspect]
     Route: 065
  5. PK-MERZ [Suspect]
     Route: 065
  6. SEROQUEL [Suspect]
     Indication: PARKINSON'S DISEASE
     Route: 065

REACTIONS (2)
  - HALLUCINATION, VISUAL [None]
  - PSYCHOTIC DISORDER [None]
